FAERS Safety Report 6468991-5 (Version None)
Quarter: 2009Q4

REPORT INFORMATION
  Report Type: 
  Country: None (occurrence: None)
  Receive Date: 20091203
  Receipt Date: 20091123
  Transmission Date: 20100525
  Serious: Yes (Hospitalization, Other)
  Sender: FDA-Public Use
  Company Number: PHEH2009US16666

PATIENT
  Age: 83 Year
  Sex: Male

DRUGS (1)
  1. RECLAST [Suspect]
     Indication: OSTEITIS DEFORMANS
     Dosage: 5 MG, UNK

REACTIONS (2)
  - BRADYCARDIA [None]
  - HYPOTENSION [None]
